FAERS Safety Report 4843753-0 (Version None)
Quarter: 2005Q4

REPORT INFORMATION
  Report Type: 
  Country: None (occurrence: None)
  Receive Date: 20051129
  Receipt Date: 20051118
  Transmission Date: 20060501
  Serious: Yes (Hospitalization, Other)
  Sender: FDA-Public Use
  Company Number: A-CH2004-07996

PATIENT
  Age: 42 Year
  Sex: Male

DRUGS (6)
  1. BOSENTAN TABLET 125 MG EU (BOSENTAN TABLET 125 MG EU) (BOSENTAN) TABLE [Suspect]
     Indication: PULMONARY HYPERTENSION
     Dosage: 125 MG, BID, ORAL; 62.5 MG, BID, ORAL
     Route: 048
     Dates: start: 20040301, end: 20040401
  2. BOSENTAN TABLET 125 MG EU (BOSENTAN TABLET 125 MG EU) (BOSENTAN) TABLE [Suspect]
     Indication: PULMONARY HYPERTENSION
     Dosage: 125 MG, BID, ORAL; 62.5 MG, BID, ORAL
     Route: 048
     Dates: start: 20040401, end: 20040809
  3. BOSENTAN TABLET 125 MG EU (BOSENTAN TABLET 125 MG EU) (BOSENTAN) TABLE [Suspect]
     Indication: PULMONARY HYPERTENSION
     Dosage: 125 MG, BID, ORAL; 62.5 MG, BID, ORAL
     Route: 048
     Dates: start: 20040813, end: 20040820
  4. BOSENTAN TABLET 125 MG EU (BOSENTAN TABLET 125 MG EU) (BOSENTAN) TABLE [Suspect]
     Indication: PULMONARY HYPERTENSION
     Dosage: 125 MG, BID, ORAL; 62.5 MG, BID, ORAL
     Route: 048
     Dates: start: 20040901, end: 20050101
  5. PREDNISONE [Concomitant]
  6. OXYGEN (OXYGEN) [Concomitant]

REACTIONS (14)
  - ABDOMINAL PAIN [None]
  - ALANINE AMINOTRANSFERASE INCREASED [None]
  - ASPARTATE AMINOTRANSFERASE INCREASED [None]
  - ASTHENIA [None]
  - BLOOD BILIRUBIN INCREASED [None]
  - CARDIAC FAILURE [None]
  - DRUG INEFFECTIVE [None]
  - GASTROINTESTINAL DISORDER [None]
  - HEPATIC PAIN [None]
  - OEDEMA PERIPHERAL [None]
  - RENAL FAILURE [None]
  - RIGHT VENTRICULAR FAILURE [None]
  - URINARY RETENTION [None]
  - WEIGHT INCREASED [None]
